FAERS Safety Report 20668672 (Version 1)
Quarter: 2022Q2

REPORT INFORMATION
  Report Type: Spontaneous
  Country: CN (occurrence: CN)
  Receive Date: 20220404
  Receipt Date: 20220404
  Transmission Date: 20220721
  Serious: Yes (Life-Threatening)
  Sender: FDA-Public Use
  Company Number: CN-BAYER-2022A046941

PATIENT
  Age: 28 Year
  Sex: Male

DRUGS (1)
  1. IOPROMIDE [Suspect]
     Active Substance: IOPROMIDE
     Indication: Computerised tomogram coronary artery
     Dosage: 55 ML, ONCE
     Route: 042
     Dates: start: 20220318, end: 20220318

REACTIONS (2)
  - Flushing [Recovered/Resolved]
  - Amaurosis [Recovered/Resolved]

NARRATIVE: CASE EVENT DATE: 20220318
